FAERS Safety Report 6238350-9 (Version None)
Quarter: 2009Q2

REPORT INFORMATION
  Report Type: 
  Country: None (occurrence: None)
  Receive Date: 20090622
  Receipt Date: 20090616
  Transmission Date: 20091009
  Serious: Yes (Hospitalization, Other)
  Sender: FDA-Public Use
  Company Number: US-BIOGENIDEC-2008BI035195

PATIENT
  Age: 57 Year
  Sex: Female
  Weight: 90 kg

DRUGS (4)
  1. TYSABRI [Suspect]
     Indication: MULTIPLE SCLEROSIS
     Route: 042
     Dates: start: 20071221, end: 20080728
  2. BACLOFEN [Concomitant]
     Indication: PAIN
  3. BACLOFEN [Concomitant]
     Indication: MUSCLE SPASTICITY
  4. BACLOFEN [Concomitant]

REACTIONS (4)
  - BREAST CANCER IN SITU [None]
  - MASTECTOMY [None]
  - MEDICAL DEVICE REMOVAL [None]
  - STAPHYLOCOCCAL INFECTION [None]
